FAERS Safety Report 4511853-0 (Version None)
Quarter: 2004Q4

REPORT INFORMATION
  Report Type: 
  Country: None (occurrence: None)
  Receive Date: 20041123
  Receipt Date: 20041108
  Transmission Date: 20050328
  Serious: Yes (Disabling)
  Sender: FDA-Public Use
  Company Number: 200408192

PATIENT
  Age: 56 Year
  Sex: Female

DRUGS (16)
  1. BOTOX [Suspect]
     Indication: FACIAL SPASM
     Dates: start: 19960101, end: 20020101
  2. CELEBREX [Concomitant]
  3. PREVACID [Concomitant]
  4. ACIPHEX [Concomitant]
  5. VALTREX [Concomitant]
  6. PREDNISONE [Concomitant]
  7. PRILOSEC [Concomitant]
  8. ACYCLOVIR [Concomitant]
  9. HYOSCYAMINE [Concomitant]
  10. NORTRIPTYLINE HCL [Concomitant]
  11. MONODOX [Concomitant]
  12. ESTRATEST H.S. [Concomitant]
  13. CEPHALEXIN [Concomitant]
  14. ZYRTEC [Concomitant]
  15. CLOBETASOL [Concomitant]
  16. NEURONTIN [Concomitant]

REACTIONS (39)
  - ANXIETY [None]
  - ARTHRITIS [None]
  - ASTHENIA [None]
  - BRAIN OPERATION [None]
  - CEREBROVASCULAR ACCIDENT [None]
  - CORNEAL REFLEX DECREASED [None]
  - DERMATITIS CONTACT [None]
  - DIFFICULTY IN WALKING [None]
  - DIPLOPIA [None]
  - DROOLING [None]
  - DYSARTHRIA [None]
  - EYE INFLAMMATION [None]
  - EYELID DISORDER [None]
  - FACIAL NERVE DISORDER [None]
  - FACIAL PALSY [None]
  - FACIAL SPASM [None]
  - FEELING COLD [None]
  - GASTRIC ULCER [None]
  - HETEROPHORIA [None]
  - MASS [None]
  - MIGRAINE [None]
  - MOBILITY DECREASED [None]
  - MOUTH HAEMORRHAGE [None]
  - MUSCLE CONTRACTIONS INVOLUNTARY [None]
  - MUSCLE SPASMS [None]
  - MUSCLE TWITCHING [None]
  - MYALGIA [None]
  - NERVOUSNESS [None]
  - NEUROLOGICAL SYMPTOM [None]
  - NEUROPATHY PERIPHERAL [None]
  - ORAL DISCOMFORT [None]
  - ORAL PAIN [None]
  - PAIN IN JAW [None]
  - PHOTOSENSITIVITY REACTION [None]
  - PROCEDURAL COMPLICATION [None]
  - SENSORY DISTURBANCE [None]
  - SNORING [None]
  - VISION BLURRED [None]
  - VISUAL ACUITY REDUCED [None]
